FAERS Safety Report 25238160 (Version 1)
Quarter: 2025Q2

REPORT INFORMATION
  Report Type: Spontaneous
  Country: KR (occurrence: KR)
  Receive Date: 20250425
  Receipt Date: 20250425
  Transmission Date: 20250717
  Serious: Yes (Other)
  Sender: ALKEM
  Company Number: KR-ALKEM LABORATORIES LIMITED-KR-ALKEM-2024-21351

PATIENT
  Age: 60 Year
  Sex: Male

DRUGS (1)
  1. VALSARTAN [Suspect]
     Active Substance: VALSARTAN
     Indication: Product used for unknown indication
     Route: 065

REACTIONS (1)
  - Angioedema [Recovering/Resolving]
